FAERS Safety Report 8111437-1 (Version None)
Quarter: 2012Q1

REPORT INFORMATION
  Report Type: 
  Country: None (occurrence: None)
  Receive Date: 20120203
  Receipt Date: 20111213
  Transmission Date: 20120608
  Serious: No
  Sender: FDA-Public Use
  Company Number: US-GLAXOSMITHKLINE-A0958000A

PATIENT
  Sex: Female

DRUGS (1)
  1. LAMICTAL [Suspect]
     Dosage: 25MG PER DAY
     Route: 048

REACTIONS (5)
  - MYALGIA [None]
  - FEELING HOT [None]
  - NAUSEA [None]
  - MUSCLE SPASMS [None]
  - CHILLS [None]
